FAERS Safety Report 20038856 (Version 1)
Quarter: 2021Q4

REPORT INFORMATION
  Report Type: Spontaneous
  Country: CA (occurrence: CA)
  Receive Date: 20211105
  Receipt Date: 20211105
  Transmission Date: 20220304
  Serious: Yes (Other)
  Sender: FDA-Public Use
  Company Number: CA-TEVA-2021-CA-1971891

PATIENT
  Age: 46 Year
  Sex: Female

DRUGS (3)
  1. NAPROXEN [Suspect]
     Active Substance: NAPROXEN
  2. SUMATRIPTAN [Suspect]
     Active Substance: SUMATRIPTAN
  3. SUVEXX [Concomitant]

REACTIONS (3)
  - Chest pain [Unknown]
  - Palpitations [Unknown]
  - Throat tightness [Unknown]
